FAERS Safety Report 20871451 (Version 1)
Quarter: 2022Q2

REPORT INFORMATION
  Report Type: Spontaneous
  Country: US (occurrence: None)
  Receive Date: 20220524
  Receipt Date: 20220524
  Transmission Date: 20220720
  Serious: Yes (Hospitalization)
  Sender: FDA-Public Use
  Company Number: None

PATIENT
  Age: 78 Year
  Sex: Male

DRUGS (10)
  1. PULMOZYME [Suspect]
     Active Substance: DORNASE ALFA
     Indication: Cystic fibrosis
     Dosage: OTHER QUANTITY : 2.5MG/2.5ML;?OTHER FREQUENCY : ONCE OR TWICE DAIL;?
     Route: 055
  2. ATENOLOL [Concomitant]
     Active Substance: ATENOLOL
  3. CHOLESTYRAMI POW RESIN [Concomitant]
  4. CREON CAP [Concomitant]
  5. DILTIAZEM CAP ER [Concomitant]
  6. TRIKAFTA [Concomitant]
     Active Substance: ELEXACAFTOR\IVACAFTOR\TEZACAFTOR
  7. VITAMIN B1 TAB [Concomitant]
  8. VITAMIN C TAB [Concomitant]
  9. VITAMIN D3 [Concomitant]
     Active Substance: CHOLECALCIFEROL
  10. WARFARIN TAB [Concomitant]

REACTIONS (2)
  - Cardiac operation [None]
  - Secretion discharge [None]

NARRATIVE: CASE EVENT DATE: 20220221
